FAERS Safety Report 4842496-7 (Version None)
Quarter: 2005Q4

REPORT INFORMATION
  Report Type: 
  Country: None (occurrence: None)
  Receive Date: 20051129
  Receipt Date: 20051109
  Transmission Date: 20060501
  Serious: Yes (Hospitalization)
  Sender: FDA-Public Use
  Company Number: US200511000069

PATIENT
  Age: 68 Year
  Sex: Female

DRUGS (13)
  1. HUMULIN R [Suspect]
     Indication: DIABETES MELLITUS
  2. HUMULIN N [Suspect]
     Indication: DIABETES MELLITUS
  3. FLORINEF [Concomitant]
  4. CORTONE (CORTISONE ACETATE) [Concomitant]
  5. PLAVIX [Concomitant]
  6. IMDUR [Concomitant]
  7. ATENOLOL [Concomitant]
  8. LASIX (FUROSEMIDE, FUROSEMIDE SODIUM) [Concomitant]
  9. POTASSIUM (POTASSIUM CHLORIDE) [Concomitant]
  10. LIPITOR [Concomitant]
  11. PRILOSEC [Concomitant]
  12. DARVOCET-N (PROPOXYPHENE NAPSYLATE UNKNOWN FORMULATION) [Concomitant]
  13. NITROGLYCERIN [Concomitant]

REACTIONS (2)
  - CHEST PAIN [None]
  - MYOCARDIAL INFARCTION [None]
